FAERS Safety Report 13034773 (Version 1)
Quarter: 2016Q4

REPORT INFORMATION
  Report Type: Spontaneous
  Country: US (occurrence: US)
  Receive Date: 20161216
  Receipt Date: 20161216
  Transmission Date: 20170207
  Serious: No
  Sender: FDA-Public Use
  Company Number: US-BAUSCH-BL-2016-023931

PATIENT
  Age: 84 Year
  Sex: Female

DRUGS (2)
  1. TIMOPTIC [Suspect]
     Active Substance: TIMOLOL MALEATE
     Indication: GLAUCOMA
     Dosage: 1 GTT OS QAM AND QPM
     Route: 047
     Dates: start: 201605, end: 20160926
  2. LUMIGAN [Concomitant]
     Active Substance: BIMATOPROST
     Indication: GLAUCOMA
     Route: 047

REACTIONS (3)
  - Intraocular pressure increased [Unknown]
  - Incorrect product storage [Unknown]
  - Drug ineffective [Unknown]

NARRATIVE: CASE EVENT DATE: 20160927
